FAERS Safety Report 26192720 (Version 1)
Quarter: 2025Q4

REPORT INFORMATION
  Report Type: Report from Study
  Country: US (occurrence: None)
  Receive Date: 20251223
  Receipt Date: 20251223
  Transmission Date: 20260118
  Serious: No
  Sender: UCB
  Company Number: US-UCBSA-2025080051

PATIENT
  Age: 28 Year
  Weight: 73 kg

DRUGS (1)
  1. FENFLURAMINE [Suspect]
     Active Substance: FENFLURAMINE
     Indication: Product used for unknown indication
     Dosage: 26.4 MILLIGRAM PER DAY

REACTIONS (2)
  - Right atrial enlargement [Unknown]
  - Mitral valve prolapse [Unknown]
